FAERS Safety Report 18923667 (Version 1)
Quarter: 2021Q1

REPORT INFORMATION
  Report Type: Spontaneous
  Country: IT (occurrence: IT)
  Receive Date: 20210222
  Receipt Date: 20210222
  Transmission Date: 20210420
  Serious: Yes (Other)
  Sender: FDA-Public Use
  Company Number: IT-PFIZER INC-2021135557

PATIENT
  Age: 65 Year
  Sex: Female

DRUGS (1)
  1. LORAZEPAM. [Suspect]
     Active Substance: LORAZEPAM
     Indication: PSYCHOTIC DISORDER
     Dosage: 12.5 MG, SINGLE
     Route: 048
     Dates: start: 20190709, end: 20190709

REACTIONS (3)
  - Asthenia [Recovering/Resolving]
  - Drug abuse [Recovering/Resolving]
  - Speech disorder [Recovering/Resolving]

NARRATIVE: CASE EVENT DATE: 20190709
